FAERS Safety Report 7222024-1 (Version None)
Quarter: 2011Q1

REPORT INFORMATION
  Report Type: 
  Country: None (occurrence: None)
  Receive Date: 20110112
  Receipt Date: 20060818
  Transmission Date: 20110831
  Serious: Yes (Other)
  Sender: FDA-Public Use
  Company Number: PHHY2006US02704

PATIENT
  Sex: Female

DRUGS (1)
  1. LOTREL [Suspect]
     Dosage: 5/10 (UNSPECIFIED UNITS), QD
     Dates: start: 20060519, end: 20060815

REACTIONS (4)
  - BLISTER [None]
  - LIP SWELLING [None]
  - SWOLLEN TONGUE [None]
  - HYPOAESTHESIA ORAL [None]
